FAERS Safety Report 23600780 (Version 1)
Quarter: 2024Q1

REPORT INFORMATION
  Report Type: Spontaneous
  Country: US (occurrence: None)
  Receive Date: 20240305
  Receipt Date: 20240305
  Transmission Date: 20240410
  Serious: Yes (Disabling)
  Sender: FDA-Public Use
  Company Number: None

PATIENT
  Age: 27 Year
  Sex: Female
  Weight: 90 kg

DRUGS (15)
  1. EMGALITY [Suspect]
     Active Substance: GALCANEZUMAB-GNLM
     Indication: Migraine
     Dosage: OTHER FREQUENCY : FIRST MONTH;?
     Route: 058
     Dates: start: 20240302, end: 20240302
  2. CONCERTA [Concomitant]
     Active Substance: METHYLPHENIDATE HYDROCHLORIDE
  3. SERTRALINE [Concomitant]
     Active Substance: SERTRALINE HYDROCHLORIDE
  4. QULIPTA [Concomitant]
     Active Substance: ATOGEPANT
  5. TOPIRAMATE [Concomitant]
     Active Substance: TOPIRAMATE
  6. UBRELVY [Concomitant]
     Active Substance: UBROGEPANT
  7. ZOFRAN [Concomitant]
     Active Substance: ONDANSETRON HYDROCHLORIDE
  8. ALEVE [Concomitant]
     Active Substance: NAPROXEN SODIUM
  9. LORATADINE [Concomitant]
     Active Substance: LORATADINE
  10. VITAMIN B12 [Concomitant]
     Active Substance: CYANOCOBALAMIN
  11. B-100 [Concomitant]
  12. HERBALS\WITHANIA SOMNIFERA ROOT [Concomitant]
     Active Substance: HERBALS\WITHANIA SOMNIFERA ROOT
  13. VITAMIN D3 [Concomitant]
     Active Substance: CHOLECALCIFEROL
  14. VITAMINS [Concomitant]
     Active Substance: VITAMINS
  15. DOXYLAMINE [Concomitant]
     Active Substance: DOXYLAMINE

REACTIONS (3)
  - Burning sensation [None]
  - Headache [None]
  - Injection site pain [None]

NARRATIVE: CASE EVENT DATE: 20240302
